FAERS Safety Report 11029544 (Version 1)
Quarter: 2015Q2

REPORT INFORMATION
  Report Type: Spontaneous
  Country: US (occurrence: None)
  Receive Date: 20150414
  Receipt Date: 20150414
  Transmission Date: 20150821
  Serious: Yes (Life-Threatening, Hospitalization, Disabling, Other)
  Sender: FDA-Public Use
  Company Number: None

PATIENT
  Age: 73 Year
  Sex: Male

DRUGS (9)
  1. VITAMIN B12 [Concomitant]
     Active Substance: CYANOCOBALAMIN
  2. LOSARTAN HYDROCHLOROTHIAZIDE [Suspect]
     Active Substance: HYDROCHLOROTHIAZIDE\LOSARTAN POTASSIUM
     Indication: HYPERTENSION
     Route: 048
     Dates: start: 20141106, end: 20141108
  3. NIFEDICAL XL [Suspect]
     Active Substance: NIFEDIPINE
     Route: 048
     Dates: start: 20141202, end: 20150313
  4. NORVASC [Suspect]
     Active Substance: AMLODIPINE BESYLATE
     Route: 048
  5. SCOOTER WHEELCHAIR [Concomitant]
  6. AMLODIPINE BESYLATE. [Suspect]
     Active Substance: AMLODIPINE BESYLATE
     Route: 048
     Dates: start: 20141112, end: 20141114
  7. SERTRALINE [Suspect]
     Active Substance: SERTRALINE HYDROCHLORIDE
     Route: 048
  8. CADISTA [Suspect]
     Active Substance: METHYLPREDNISOLONE
     Route: 048
  9. VITAMIN D3 [Concomitant]
     Active Substance: CHOLECALCIFEROL

REACTIONS (10)
  - Dehydration [None]
  - Seizure [None]
  - Herpes zoster [None]
  - Micturition disorder [None]
  - Joint swelling [None]
  - Hypertension [None]
  - Dysphagia [None]
  - Dyspnoea [None]
  - Headache [None]
  - Cerebrovascular accident [None]

NARRATIVE: CASE EVENT DATE: 20141106
